FAERS Safety Report 23087999 (Version 1)
Quarter: 2023Q4

REPORT INFORMATION
  Report Type: Spontaneous
  Country: CA (occurrence: CA)
  Receive Date: 20231020
  Receipt Date: 20231020
  Transmission Date: 20240109
  Serious: Yes (Other)
  Sender: FDA-Public Use
  Company Number: CA-GLAXOSMITHKLINE-CA2022AMR164570

PATIENT

DRUGS (1)
  1. BENLYSTA [Suspect]
     Active Substance: BELIMUMAB
     Indication: Systemic lupus erythematosus
     Dosage: UNK

REACTIONS (9)
  - Pneumonia [Unknown]
  - Pneumonitis [Unknown]
  - Arthralgia [Recovered/Resolved]
  - Ear infection [Recovered/Resolved]
  - Impaired work ability [Unknown]
  - Chest pain [Not Recovered/Not Resolved]
  - Pulmonary pain [Unknown]
  - COVID-19 [Unknown]
  - Product dose omission issue [Unknown]

NARRATIVE: CASE EVENT DATE: 20230901
